FAERS Safety Report 4681930-2 (Version None)
Quarter: 2005Q2

REPORT INFORMATION
  Report Type: 
  Country: None (occurrence: None)
  Receive Date: 20050602
  Receipt Date: 20050516
  Transmission Date: 20051028
  Serious: Yes (Death)
  Sender: FDA-Public Use
  Company Number: JP_050406286

PATIENT
  Age: 49 Year
  Sex: Female
  Weight: 68 kg

DRUGS (4)
  1. ZYPREXA [Suspect]
     Indication: SCHIZOPHRENIA
     Dosage: 20 MG DAY
     Dates: start: 20040401
  2. LULLAN (PEROSPIRONE HYDROCHLORIDE) [Concomitant]
  3. AKIRIDEN (BIPERIDEN HYDROCHLORIDE) [Concomitant]
  4. VEGETAMIN B [Concomitant]

REACTIONS (3)
  - BREAST CANCER FEMALE [None]
  - MALIGNANT NEOPLASM PROGRESSION [None]
  - METASTASES TO BONE [None]
